FAERS Safety Report 15731153 (Version 1)
Quarter: 2018Q4

REPORT INFORMATION
  Report Type: Spontaneous
  Country: FR (occurrence: FR)
  Receive Date: 20181217
  Receipt Date: 20181217
  Transmission Date: 20190205
  Serious: Yes (Hospitalization)
  Sender: FDA-Public Use
  Company Number: FR-MYLANLABS-2018M1092894

PATIENT
  Age: 59 Year
  Sex: Male
  Weight: 73 kg

DRUGS (14)
  1. OFLOXACINE MYLAN 200 MG, COMPRIM? PELLICUL? S?CABLE [Suspect]
     Active Substance: OFLOXACIN
     Indication: ESCHERICHIA INFECTION
     Dosage: UNK
     Route: 048
     Dates: start: 20180523, end: 20180603
  2. BISOCE [Concomitant]
     Active Substance: BISOPROLOL
     Dosage: UNK
  3. SERESTA [Suspect]
     Active Substance: OXAZEPAM
     Indication: DEPRESSION
     Dosage: 1 DOSAGE FORM, QD
     Route: 048
     Dates: start: 20180530, end: 20180605
  4. PANTOPRAZOLE [Concomitant]
     Active Substance: PANTOPRAZOLE
     Dosage: UNK
  5. BENAZEPRIL [Concomitant]
     Active Substance: BENAZEPRIL HYDROCHLORIDE
     Dosage: UNK
  6. COLCHICINE OPOCALCIUM [Concomitant]
     Active Substance: COLCHICINE
     Dosage: UNK
  7. NOVORAPID [Concomitant]
     Active Substance: INSULIN ASPART
     Dosage: UNK
  8. PAROXETINE ARROW [Suspect]
     Active Substance: PAROXETINE
     Indication: DEPRESSION
     Dosage: 1 DOSAGE FORM, QD
     Route: 048
     Dates: start: 20180525, end: 20180605
  9. ADENURIC [Concomitant]
     Active Substance: FEBUXOSTAT
     Dosage: UNK
  10. LOVENOX [Concomitant]
     Active Substance: ENOXAPARIN SODIUM
     Dosage: UNK
  11. CEFTRIAXONE MYLAN 2 G, POUDRE POUR SOLUTION INJECTABLE I.V. [Suspect]
     Active Substance: CEFTRIAXONE
     Indication: ESCHERICHIA INFECTION
     Dosage: 1 DOSAGE FORM, QD
     Route: 042
     Dates: start: 20180526
  12. OROZAMUDOL 50 MG, COMPRIM? ORODISPERSIBLE [Suspect]
     Active Substance: TRAMADOL
     Indication: PAIN
     Dosage: 4 DOSAGE FORM, QD
     Route: 048
     Dates: start: 20180525, end: 20180603
  13. EUPRESSYL                          /00631801/ [Concomitant]
     Active Substance: URAPIDIL
     Dosage: UNK
  14. XATRAL                             /00975301/ [Concomitant]
     Active Substance: ALFUZOSIN
     Dosage: UNK

REACTIONS (3)
  - Status epilepticus [Recovered/Resolved]
  - Confusional state [Recovered/Resolved]
  - Myoclonus [Recovered/Resolved]

NARRATIVE: CASE EVENT DATE: 20180603
